FAERS Safety Report 5493449-X (Version None)
Quarter: 2007Q4

REPORT INFORMATION
  Report Type: 
  Country: None (occurrence: None)
  Receive Date: 20071019
  Receipt Date: 20071015
  Transmission Date: 20080405
  Serious: Yes (Other)
  Sender: FDA-Public Use
  Company Number: THQ2007A00978

PATIENT
  Age: 50 Year
  Sex: Female

DRUGS (3)
  1. LEUPROLIDE ACETATE [Suspect]
     Indication: PAIN
     Dosage: 1 DOSE 1 X PER TOT;
  2. LEUPROLIDE ACETATE [Suspect]
     Indication: PAIN
     Dosage: 1 DOSE 1 X TOT (1 IN 3 M);
  3. DEPO-PROVERA SUSPENSION/INJ [Suspect]
     Dosage: 1 DOSE 1 X PER TOT;

REACTIONS (6)
  - ABSCESS [None]
  - ALVEOLAR OSTEITIS [None]
  - BREAST CANCER METASTATIC [None]
  - CHRONIC FATIGUE SYNDROME [None]
  - DRUG INTERACTION [None]
  - WRONG DRUG ADMINISTERED [None]
